FAERS Safety Report 10247879 (Version 5)
Quarter: 2014Q4

REPORT INFORMATION
  Report Type: Other
  Country: IT (occurrence: IT)
  Receive Date: 20140619
  Receipt Date: 20141020
  Transmission Date: 20150528
  Serious: Yes (Hospitalization)
  Sender: FDA-Public Use
  Company Number: IT-TAKEDA-2014TEU005270

PATIENT
  Age: 61 Year
  Sex: Male

DRUGS (14)
  1. SIMVASTATIN. [Suspect]
     Active Substance: SIMVASTATIN
     Indication: INTENTIONAL SELF-INJURY
     Dosage: 280 MG, TOTAL
     Route: 048
     Dates: start: 20140423, end: 20140423
  2. ZEFFIX [Suspect]
     Active Substance: LAMIVUDINE
     Indication: INTENTIONAL SELF-INJURY
     Dosage: 140 MG, TOTAL
     Route: 048
     Dates: start: 20140423, end: 20140423
  3. LANSOPRAZOLE. [Suspect]
     Active Substance: LANSOPRAZOLE
     Dosage: 2 DF, QD
     Route: 048
  4. SIMVASTATIN. [Suspect]
     Active Substance: SIMVASTATIN
     Dosage: 1 DF, QD
     Route: 048
  5. DENIBAN [Suspect]
     Active Substance: AMISULPRIDE
     Dosage: 2 DF, QD
     Route: 048
  6. METFORMIN [Suspect]
     Active Substance: METFORMIN HYDROCHLORIDE
     Dosage: 1000 MG, TID
     Route: 048
  7. CITALOPRAM [Suspect]
     Active Substance: CITALOPRAM HYDROBROMIDE
     Dosage: 2 DF, QD
     Route: 048
  8. VASORETIC 20 MG + 12.5 MG [Suspect]
     Active Substance: ENALAPRIL MALEATE\HYDROCHLOROTHIAZIDE
     Indication: INTENTIONAL SELF-INJURY
     Dosage: 227.5 MG, TOTAL
     Route: 048
     Dates: start: 20140423, end: 20140423
  9. VASORETIC 20 MG + 12.5 MG [Suspect]
     Active Substance: ENALAPRIL MALEATE\HYDROCHLOROTHIAZIDE
     Dosage: 1 DF, QD
     Route: 048
  10. DENIBAN [Suspect]
     Active Substance: AMISULPRIDE
     Indication: INTENTIONAL SELF-INJURY
     Dosage: 500 MG, TOTAL
     Route: 048
     Dates: start: 20140423, end: 20140423
  11. ZOLPIDEM TARTRATE. [Suspect]
     Active Substance: ZOLPIDEM TARTRATE
     Indication: INTENTIONAL SELF-INJURY
     Dosage: 50 MG, TOTAL
     Route: 048
     Dates: start: 20140423, end: 20140423
  12. METFORMIN [Suspect]
     Active Substance: METFORMIN HYDROCHLORIDE
     Indication: INTENTIONAL SELF-INJURY
     Dosage: 35000 MG, TOTAL
     Route: 048
     Dates: start: 20140423, end: 20140423
  13. CITALOPRAM [Suspect]
     Active Substance: CITALOPRAM HYDROBROMIDE
     Indication: INTENTIONAL SELF-INJURY
     Dosage: 280 MG, TOTAL
     Route: 048
     Dates: start: 20140423, end: 20140423
  14. LANSOPRAZOLE. [Suspect]
     Active Substance: LANSOPRAZOLE
     Indication: INTENTIONAL SELF-INJURY
     Dosage: 105 MG, TOTAL
     Route: 048
     Dates: start: 20140423, end: 20140423

REACTIONS (6)
  - Intentional self-injury [Recovered/Resolved]
  - Metabolic acidosis [Recovered/Resolved]
  - Conduction disorder [Recovered/Resolved]
  - Hypotension [Recovered/Resolved]
  - Depressed level of consciousness [Recovered/Resolved]
  - Drug abuse [Recovered/Resolved]

NARRATIVE: CASE EVENT DATE: 20140423
